FAERS Safety Report 4880580-2 (Version None)
Quarter: 2006Q1

REPORT INFORMATION
  Report Type: 
  Country: None (occurrence: None)
  Receive Date: 20060113
  Receipt Date: 20050509
  Transmission Date: 20060701
  Serious: Yes (Hospitalization)
  Sender: FDA-Public Use
  Company Number: US-MERCK-0505USA01275

PATIENT
  Age: 46 Year
  Sex: Female

DRUGS (8)
  1. ZOCOR [Suspect]
     Indication: HYPERLIPIDAEMIA
     Route: 048
     Dates: start: 20020101, end: 20030513
  2. EFFEXOR [Concomitant]
     Indication: DEPRESSION
     Route: 048
     Dates: end: 20030513
  3. MIRAPEX [Concomitant]
     Route: 048
  4. AMBIEN [Concomitant]
     Route: 065
  5. NEURONTIN [Concomitant]
     Route: 065
     Dates: end: 20030513
  6. AVALIDE [Concomitant]
     Route: 065
  7. MIDRIN [Concomitant]
     Route: 065
  8. ATORVASTATIN CALCIUM [Suspect]
     Route: 065
     Dates: end: 20020101

REACTIONS (4)
  - ARTHRALGIA [None]
  - FATIGUE [None]
  - MYOSITIS [None]
  - RHABDOMYOLYSIS [None]
